FAERS Safety Report 9143925 (Version 6)
Quarter: 2014Q2

REPORT INFORMATION
  Report Type: Report from Study
  Country: JP (occurrence: JP)
  Receive Date: 20130306
  Receipt Date: 20140527
  Transmission Date: 20141212
  Serious: Yes (Hospitalization)
  Sender: FDA-Public Use
  Company Number: PHHO2013JP003222

PATIENT
  Age: 76 Year
  Sex: Female
  Weight: 47 kg

DRUGS (4)
  1. EXELON [Suspect]
     Indication: DEMENTIA ALZHEIMER^S TYPE
     Dosage: 1-STEP TITRATION
     Route: 062
     Dates: start: 20130213, end: 20130226
  2. PLACEBO [Suspect]
     Indication: DEMENTIA ALZHEIMER^S TYPE
     Dosage: 1- STEP TITRATION
     Dates: start: 20130213, end: 20130226
  3. MERCAZOLE [Concomitant]
     Indication: HYPERTHYROIDISM
     Dosage: 5 MG, UNK
     Route: 048
     Dates: start: 201006
  4. EVISTA [Concomitant]
     Indication: OSTEOPOROSIS
     Dosage: 60 MG, UNK
     Route: 048
     Dates: start: 20101113

REACTIONS (1)
  - Thoracic vertebral fracture [Recovered/Resolved]
